FAERS Safety Report 22324398 (Version 8)
Quarter: 2024Q2

REPORT INFORMATION
  Report Type: Spontaneous
  Country: US (occurrence: US)
  Receive Date: 20230516
  Receipt Date: 20240606
  Transmission Date: 20240716
  Serious: No
  Sender: FDA-Public Use
  Company Number: US-PFIZER INC-PV202300086220

PATIENT
  Age: 40 Year
  Sex: Male
  Weight: 59.87 kg

DRUGS (8)
  1. OXBRYTA [Suspect]
     Active Substance: VOXELOTOR
     Indication: Sickle cell disease
     Dosage: 1500 MG, DAILY
     Route: 048
     Dates: start: 20230501, end: 202305
  2. OXBRYTA [Suspect]
     Active Substance: VOXELOTOR
     Indication: Sickle cell anaemia
     Dosage: 1000 MG, 1X/DAY
     Dates: start: 202305
  3. OXBRYTA [Suspect]
     Active Substance: VOXELOTOR
     Dosage: 1500 MG, DAILY
     Route: 048
     Dates: start: 20230515
  4. OXBRYTA [Suspect]
     Active Substance: VOXELOTOR
     Dosage: 500 MG, 2X/DAY
     Route: 048
     Dates: start: 20230703
  5. OXBRYTA [Suspect]
     Active Substance: VOXELOTOR
     Dosage: TWO TABLETS BY MOUTH DAILY
     Route: 048
  6. FOLIC ACID [Suspect]
     Active Substance: FOLIC ACID
     Indication: Sickle cell anaemia
     Dosage: 1 MG, 1X/DAY (ONE TABLET A DAY)
     Route: 048
  7. ENDARI [Concomitant]
     Active Substance: GLUTAMINE
     Indication: Sickle cell anaemia
     Dosage: 2 DF, 2X/DAY (2 PACKETS TWICE A DAY (4 PACKETS TOTAL); MAYBE 20 MG TOTAL)
  8. HYDROXYUREA [Concomitant]
     Active Substance: HYDROXYUREA
     Indication: Sickle cell anaemia
     Dosage: 1000 MG, 1X/DAY

REACTIONS (4)
  - Nausea [Unknown]
  - Headache [Recovered/Resolved]
  - Intentional product misuse [Unknown]
  - Product dose omission issue [Unknown]

NARRATIVE: CASE EVENT DATE: 20230501
